FAERS Safety Report 6119204-5 (Version None)
Quarter: 2009Q1

REPORT INFORMATION
  Report Type: 
  Country: None (occurrence: None)
  Receive Date: 20090316
  Receipt Date: 20090303
  Transmission Date: 20090719
  Serious: Yes (Hospitalization, Other)
  Sender: FDA-Public Use
  Company Number: CA-ELI_LILLY_AND_COMPANY-CA200903001032

PATIENT
  Age: 67 Year
  Sex: Male

DRUGS (10)
  1. FORTEO [Suspect]
     Indication: OSTEOPOROSIS
     Dosage: 20 UG, DAILY (1/D)
     Route: 058
     Dates: start: 20090123
  2. ADVAIR HFA [Concomitant]
  3. SPIRIVA [Concomitant]
  4. CALCIUM [Concomitant]
  5. VITAMIN D [Concomitant]
  6. OXYGEN [Concomitant]
     Dosage: CONTINUOUS
  7. ASPIRIN [Concomitant]
  8. PREDNISONE [Concomitant]
  9. TRIATEC [Concomitant]
  10. AVELOX [Concomitant]

REACTIONS (1)
  - CHRONIC OBSTRUCTIVE PULMONARY DISEASE [None]
